FAERS Safety Report 13726082 (Version 1)
Quarter: 2017Q3

REPORT INFORMATION
  Report Type: Spontaneous
  Country: JP (occurrence: JP)
  Receive Date: 20170707
  Receipt Date: 20170707
  Transmission Date: 20171127
  Serious: Yes (Death, Hospitalization)
  Sender: FDA-Public Use
  Company Number: JP-EISAI MEDICAL RESEARCH-EC-2017-028994

PATIENT
  Age: 66 Year
  Sex: Female

DRUGS (2)
  1. LENVIMA [Suspect]
     Active Substance: LENVATINIB
     Indication: PAPILLARY THYROID CANCER
     Route: 048
     Dates: start: 201608, end: 2016
  2. LENVIMA [Suspect]
     Active Substance: LENVATINIB
     Dosage: DOSE DECREASED (DOSE UNKNOWN)
     Route: 048
     Dates: start: 2016, end: 2016

REACTIONS (4)
  - Haemoptysis [Unknown]
  - Malaise [Unknown]
  - Stomatitis [Unknown]
  - Thrombocytopenia [Unknown]

NARRATIVE: CASE EVENT DATE: 2016
